FAERS Safety Report 9442919 (Version 1)
Quarter: 2013Q3

REPORT INFORMATION
  Report Type: Spontaneous
  Country: FR (occurrence: FR)
  Receive Date: 20130806
  Receipt Date: 20130806
  Transmission Date: 20140515
  Serious: Yes (Hospitalization)
  Sender: FDA-Public Use
  Company Number: FR-JNJFOC-20130717511

PATIENT
  Age: 82 Year
  Sex: Female

DRUGS (2)
  1. HALDOL [Suspect]
     Indication: ABNORMAL BEHAVIOUR
     Route: 048
     Dates: end: 20130414
  2. HALDOL [Suspect]
     Indication: COGNITIVE DISORDER
     Route: 048
     Dates: end: 20130414

REACTIONS (3)
  - Hypertonia [Recovering/Resolving]
  - Somnolence [Unknown]
  - Extrapyramidal disorder [Unknown]
